FAERS Safety Report 6611370-8 (Version None)
Quarter: 2010Q1

REPORT INFORMATION
  Report Type: 
  Country: None (occurrence: None)
  Receive Date: 20100222
  Receipt Date: 20100215
  Transmission Date: 20100710
  Serious: Yes (Life-Threatening)
  Sender: FDA-Public Use
  Company Number: 2010SP008968

PATIENT
  Age: 40 Year
  Sex: Female
  Weight: 72 kg

DRUGS (5)
  1. ROCURONIUM BROMIDE [Suspect]
     Indication: ANAESTHESIA
     Dosage: 50 MG; IV
     Route: 042
     Dates: start: 20100204, end: 20100204
  2. BUSCOPAN [Concomitant]
  3. ACETAMINOPHEN AND CODEINE PHOSPHATE [Concomitant]
  4. IBUPROFEN [Concomitant]
  5. TRAMADOL HCL [Concomitant]

REACTIONS (3)
  - AIRWAY COMPLICATION OF ANAESTHESIA [None]
  - HYPOTENSION [None]
  - URTICARIA [None]
